APPROVED DRUG PRODUCT: BUPROPION HYDROCHLORIDE
Active Ingredient: BUPROPION HYDROCHLORIDE
Strength: 300MG
Dosage Form/Route: TABLET, EXTENDED RELEASE;ORAL
Application: A201567 | Product #001 | TE Code: AB3
Applicant: ZYDUS PHARMACEUTICALS USA INC
Approved: Jan 17, 2014 | RLD: No | RS: No | Type: RX